FAERS Safety Report 6035382-0 (Version None)
Quarter: 2009Q1

REPORT INFORMATION
  Report Type: 
  Country: None (occurrence: None)
  Receive Date: 20090112
  Receipt Date: 20090112
  Transmission Date: 20090719
  Serious: No
  Sender: FDA-Public Use
  Company Number: None

PATIENT
  Sex: Female

DRUGS (2)
  1. NORETHINDRONE AND ETHINYL ESTRADIOL [Suspect]
     Indication: CONTRACEPTION
     Dosage: ONCE DAILY PO
     Route: 048
     Dates: start: 20080301, end: 20080901
  2. NORETHINDRONE AND ETHINYL ESTRADIOL [Suspect]
     Indication: MENORRHAGIA
     Dosage: ONCE DAILY PO
     Route: 048
     Dates: start: 20080301, end: 20080901

REACTIONS (1)
  - PULMONARY EMBOLISM [None]
